FAERS Safety Report 8234071-1 (Version None)
Quarter: 2012Q1

REPORT INFORMATION
  Report Type: 
  Country: None (occurrence: None)
  Receive Date: 20120326
  Receipt Date: 20120326
  Transmission Date: 20120608
  Serious: Yes (Other)
  Sender: FDA-Public Use
  Company Number: None

PATIENT
  Age: 26 Year
  Sex: Female
  Weight: 52.163 kg

DRUGS (1)
  1. LEVONORGESTREL [Suspect]
     Indication: POST COITAL CONTRACEPTION
     Dosage: ONE PILL
     Route: 048
     Dates: start: 20120219, end: 20120219

REACTIONS (5)
  - PREGNANCY AFTER POST COITAL CONTRACEPTION [None]
  - VAGINAL HAEMORRHAGE [None]
  - ECTOPIC PREGNANCY [None]
  - PAIN [None]
  - MATERNAL EXPOSURE DURING PREGNANCY [None]
